FAERS Safety Report 16994767 (Version 1)
Quarter: 2019Q4

REPORT INFORMATION
  Report Type: Spontaneous
  Country: CA (occurrence: CA)
  Receive Date: 20191105
  Receipt Date: 20191105
  Transmission Date: 20200122
  Serious: Yes (Other)
  Sender: FDA-Public Use
  Company Number: CA-ROCHE-2450323

PATIENT
  Age: 54 Year
  Sex: Female

DRUGS (7)
  1. METHOTREXATE. [Concomitant]
     Active Substance: METHOTREXATE
     Route: 065
  2. VENLAFAXINE XR [Concomitant]
     Active Substance: VENLAFAXINE HYDROCHLORIDE
     Route: 065
  3. VENLAFAXINE XR [Concomitant]
     Active Substance: VENLAFAXINE HYDROCHLORIDE
     Route: 065
  4. NORTRIPTYLINE [Concomitant]
     Active Substance: NORTRIPTYLINE
     Route: 065
  5. ACTEMRA [Suspect]
     Active Substance: TOCILIZUMAB
     Indication: RHEUMATOID ARTHRITIS
     Dosage: THERAPY DURATION-616.0 DAY(S)
     Route: 042
  6. TRAMADOL HYDROCHLORIDE. [Suspect]
     Active Substance: TRAMADOL HYDROCHLORIDE
     Indication: PRODUCT USED FOR UNKNOWN INDICATION
     Dosage: THERAPY DURATION-616.0 DAY(S)
     Route: 065
  7. RABEPRAZOLE [Concomitant]
     Active Substance: RABEPRAZOLE
     Route: 065

REACTIONS (33)
  - Fatigue [Unknown]
  - Salivary gland disorder [Unknown]
  - Sinusitis [Unknown]
  - Blood pressure increased [Unknown]
  - Impaired healing [Unknown]
  - Pain [Unknown]
  - Rash [Unknown]
  - Arthralgia [Unknown]
  - Corneal abrasion [Unknown]
  - Glossodynia [Unknown]
  - Oropharyngeal pain [Unknown]
  - Bronchitis [Unknown]
  - Drug ineffective [Unknown]
  - Gastroenteritis viral [Unknown]
  - Musculoskeletal pain [Unknown]
  - Nasopharyngitis [Unknown]
  - Pharyngitis [Unknown]
  - Cough [Unknown]
  - Ear pain [Unknown]
  - Oral herpes [Unknown]
  - Superficial injury of eye [Unknown]
  - Blister [Unknown]
  - Hypertension [Unknown]
  - Malaise [Unknown]
  - Nausea [Unknown]
  - Oxygen saturation decreased [Unknown]
  - Groin infection [Unknown]
  - Hordeolum [Unknown]
  - Influenza [Unknown]
  - Respiratory rate increased [Unknown]
  - Seasonal allergy [Unknown]
  - Blood pressure systolic increased [Unknown]
  - Pain in extremity [Unknown]
